FAERS Safety Report 9659547 (Version 1)
Quarter: 2013Q4

REPORT INFORMATION
  Report Type: Spontaneous
  Country: JP (occurrence: JP)
  Receive Date: 20131031
  Receipt Date: 20131031
  Transmission Date: 20140711
  Serious: Yes (Hospitalization)
  Sender: FDA-Public Use
  Company Number: JP-ASTRAZENECA-2013SE79191

PATIENT
  Age: 82 Year
  Sex: Male

DRUGS (1)
  1. SYMBICORT TURBUHALER [Suspect]
     Indication: ASTHMA
     Dosage: 4 DF TWO TIMES A DAY
     Route: 055

REACTIONS (2)
  - Ileus [Not Recovered/Not Resolved]
  - Sepsis [Unknown]
